FAERS Safety Report 25761693 (Version 1)
Quarter: 2025Q3

REPORT INFORMATION
  Report Type: Spontaneous
  Country: CN (occurrence: CN)
  Receive Date: 20250904
  Receipt Date: 20250904
  Transmission Date: 20251021
  Serious: Yes (Other)
  Sender: TERSERA THERAPEUTICS
  Company Number: CN-ASTRAZENECA-202509CHN000071CN

PATIENT

DRUGS (15)
  1. GOSERELIN [Suspect]
     Active Substance: GOSERELIN
     Indication: Neoplasm malignant
     Dosage: 3.6 MILLIGRAM, QW
     Route: 058
     Dates: start: 20250523, end: 20250822
  2. GOSERELIN [Suspect]
     Active Substance: GOSERELIN
     Indication: Endocrine neoplasm malignant
  3. GOSERELIN [Suspect]
     Active Substance: GOSERELIN
     Indication: Breast cancer female
  4. ZOLADEX [Suspect]
     Active Substance: GOSERELIN ACETATE
     Indication: Neoplasm malignant
     Route: 065
  5. ZOLADEX [Suspect]
     Active Substance: GOSERELIN ACETATE
     Indication: Endocrine neoplasm malignant
  6. ZOLADEX [Suspect]
     Active Substance: GOSERELIN ACETATE
     Indication: Breast cancer female
  7. LETROZOLE [Suspect]
     Active Substance: LETROZOLE
     Indication: Neoplasm malignant
     Route: 048
     Dates: start: 20250523, end: 20250822
  8. LETROZOLE [Suspect]
     Active Substance: LETROZOLE
     Indication: Endocrine neoplasm malignant
  9. LETROZOLE [Suspect]
     Active Substance: LETROZOLE
     Indication: Breast cancer female
  10. ZOLEDRONIC ACID [Suspect]
     Active Substance: ZOLEDRONIC ACID
     Indication: Neoplasm malignant
     Dosage: 4 MILLIGRAM, Q4W
     Route: 041
     Dates: start: 20250523, end: 20250822
  11. ZOLEDRONIC ACID [Suspect]
     Active Substance: ZOLEDRONIC ACID
     Indication: Endocrine neoplasm malignant
  12. ZOLEDRONIC ACID [Suspect]
     Active Substance: ZOLEDRONIC ACID
     Indication: Breast cancer female
  13. ABEMACICLIB [Suspect]
     Active Substance: ABEMACICLIB
     Indication: Breast cancer female
     Route: 048
     Dates: start: 20250523, end: 20250822
  14. ABEMACICLIB [Suspect]
     Active Substance: ABEMACICLIB
     Indication: Neoplasm malignant
  15. ABEMACICLIB [Suspect]
     Active Substance: ABEMACICLIB
     Indication: Endocrine neoplasm malignant

REACTIONS (1)
  - Myelosuppression [Unknown]

NARRATIVE: CASE EVENT DATE: 20250822
